FAERS Safety Report 21893337 (Version 1)
Quarter: 2023Q1

REPORT INFORMATION
  Report Type: Spontaneous
  Country: CA (occurrence: CA)
  Receive Date: 20230121
  Receipt Date: 20230121
  Transmission Date: 20230417
  Serious: Yes (Life-Threatening, Hospitalization, Other)
  Sender: FDA-Public Use
  Company Number: None

PATIENT
  Age: 77 Year
  Sex: Female
  Weight: 130 kg

DRUGS (21)
  1. CARBOPLATIN [Suspect]
     Active Substance: CARBOPLATIN
     Indication: Invasive ductal breast carcinoma
     Route: 042
  2. TAXOL [Suspect]
     Active Substance: PACLITAXEL
     Indication: Invasive ductal breast carcinoma
     Route: 042
  3. ACETAMINOPHEN [Concomitant]
     Active Substance: ACETAMINOPHEN
  4. ASPIRIN [Concomitant]
     Active Substance: ASPIRIN
     Route: 065
  5. ANTACID [Concomitant]
     Active Substance: ALUMINUM HYDROXIDE\CALCIUM CARBONATE\DIMETHICONE\MAGNESIUM HYDROXIDE
  6. ATENOLOL [Concomitant]
     Active Substance: ATENOLOL
  7. CALCIUM [Concomitant]
     Active Substance: CALCIUM
  8. CHOLECALCIFEROL [Concomitant]
     Active Substance: CHOLECALCIFEROL
  9. DEXAMETHASONE [Concomitant]
     Active Substance: DEXAMETHASONE
     Route: 014
  10. DIMENHYDRINATE [Concomitant]
     Active Substance: DIMENHYDRINATE
  11. ENALAPRIL [Concomitant]
     Active Substance: ENALAPRIL
  12. LIDOCAINE [Concomitant]
     Active Substance: LIDOCAINE
     Dosage: TOPICAL
  13. METOCLOPRAMIDE [Concomitant]
     Active Substance: METOCLOPRAMIDE
  14. MORPHINE [Concomitant]
     Active Substance: MORPHINE
  15. NYSTATIN [Concomitant]
     Active Substance: NYSTATIN
  16. ONDANSETRON [Concomitant]
     Active Substance: ONDANSETRON
  17. PREGABALIN [Concomitant]
     Active Substance: PREGABALIN
  18. ROSUVASTATIN [Concomitant]
     Active Substance: ROSUVASTATIN
     Route: 065
  19. SENOKOT [Concomitant]
     Active Substance: SENNOSIDES
  20. TRAVOPROST [Concomitant]
     Active Substance: TRAVOPROST
  21. ZOLEDRONIC ACID [Concomitant]
     Active Substance: ZOLEDRONIC ACID

REACTIONS (8)
  - Acute kidney injury [Recovered/Resolved]
  - Colitis [Recovered/Resolved]
  - Escherichia infection [Recovered/Resolved]
  - Febrile neutropenia [Recovered/Resolved]
  - Fluid replacement [Unknown]
  - Sepsis [Recovered/Resolved]
  - Transfusion [Unknown]
  - Urinary tract infection [Recovered/Resolved]
